FAERS Safety Report 4416512-0 (Version None)
Quarter: 2004Q3

REPORT INFORMATION
  Report Type: 
  Country: None (occurrence: None)
  Receive Date: 20040802
  Receipt Date: 20040720
  Transmission Date: 20050211
  Serious: Yes (Hospitalization, Other)
  Sender: FDA-Public Use
  Company Number: 2004049320

PATIENT
  Age: 42 Year
  Sex: Male
  Weight: 104 kg

DRUGS (13)
  1. ATORVASTATIN CALCIUM [Suspect]
     Indication: TYPE IIA HYPERLIPIDAEMIA
     Dosage: 40 MG (40 MG, 1 IN D), ORAL
     Route: 048
     Dates: start: 20010101, end: 20040101
  2. ROSUVASTATIN (ROSUVASTATIN) [Suspect]
     Indication: ILL-DEFINED DISORDER
     Dates: start: 20040101, end: 20040101
  3. FENOFIBRATE [Suspect]
     Indication: ILL-DEFINED DISORDER
     Dates: start: 20040101, end: 20040101
  4. MORPHINE SULFATE [Concomitant]
  5. CLOPIDOGREL BISULFATE [Concomitant]
  6. MOLSIDOMINE [Concomitant]
  7. DILTIAZEM [Concomitant]
  8. ISOSORBIDE DINITRATE [Concomitant]
  9. ACETYLSALICYLATE LYSINE [Concomitant]
  10. NITROGLYCERIN [Concomitant]
  11. BROMAZEPAM [Concomitant]
  12. CLONAZEPAM [Concomitant]
  13. BISOPROLOL FUMARATE [Concomitant]

REACTIONS (4)
  - ANAEMIA [None]
  - BLOOD CREATINE PHOSPHOKINASE INCREASED [None]
  - MYOCARDIAL INFARCTION [None]
  - PAIN IN EXTREMITY [None]
